FAERS Safety Report 18927783 (Version 1)
Quarter: 2021Q1

REPORT INFORMATION
  Report Type: Spontaneous
  Country: US (occurrence: US)
  Receive Date: 20210223
  Receipt Date: 20210223
  Transmission Date: 20210420
  Serious: No
  Sender: FDA-Public Use
  Company Number: US-FERRINGPH-2020FE05905

PATIENT
  Age: 29 Year
  Sex: Female
  Weight: 82 kg

DRUGS (1)
  1. DDAVP [Suspect]
     Active Substance: DESMOPRESSIN ACETATE
     Indication: DIABETES INSIPIDUS
     Dosage: UNK
     Route: 065
     Dates: start: 2000, end: 202008

REACTIONS (7)
  - Nausea [Recovering/Resolving]
  - Fatigue [Recovering/Resolving]
  - Recalled product administered [Recovered/Resolved]
  - Fluid retention [Recovering/Resolving]
  - Thirst [Recovering/Resolving]
  - Headache [Recovering/Resolving]
  - Out of specification product use [Recovered/Resolved]

NARRATIVE: CASE EVENT DATE: 2020
